FAERS Safety Report 16332006 (Version 1)
Quarter: 2019Q2

REPORT INFORMATION
  Report Type: Spontaneous
  Country: US (occurrence: US)
  Receive Date: 20190412
  Receipt Date: 20190412
  Transmission Date: 20190711
  Serious: No
  Sender: FDA-Public Use
  Company Number: None

PATIENT
  Age: 19 Year
  Sex: Female

DRUGS (1)
  1. HUMIRA [Suspect]
     Active Substance: ADALIMUMAB
     Indication: HIDRADENITIS
     Route: 058
     Dates: start: 20180307

REACTIONS (4)
  - Rash generalised [None]
  - Pyrexia [None]
  - Urticaria [None]
  - Therapy cessation [None]

NARRATIVE: CASE EVENT DATE: 20190401
